FAERS Safety Report 7739621-7 (Version None)
Quarter: 2011Q3

REPORT INFORMATION
  Report Type: 
  Country: None (occurrence: None)
  Receive Date: 20110909
  Receipt Date: 20110831
  Transmission Date: 20111222
  Serious: Yes (Hospitalization)
  Sender: FDA-Public Use
  Company Number: US-AMGEN-USASP2011044784

PATIENT
  Sex: Male

DRUGS (1)
  1. ENBREL [Suspect]
     Indication: PSORIATIC ARTHROPATHY
     Dosage: 50 MG, QWK
     Dates: start: 20100101

REACTIONS (5)
  - HYPERTENSION [None]
  - ARTHRALGIA [None]
  - CEREBROVASCULAR ACCIDENT [None]
  - PSORIASIS [None]
  - HEADACHE [None]
